FAERS Safety Report 4347542-5 (Version None)
Quarter: 2004Q1

REPORT INFORMATION
  Report Type: 
  Country: None (occurrence: None)
  Receive Date: 20040325
  Receipt Date: 20040302
  Transmission Date: 20041129
  Serious: No
  Sender: FDA-Public Use
  Company Number: USA040260073

PATIENT
  Age: 54 Year
  Sex: Female
  Weight: 49 kg

DRUGS (1)
  1. FORTEO [Suspect]
     Indication: OSTEOPOROSIS
     Dosage: 20 UG/ 1 DAY
     Dates: start: 20040215

REACTIONS (3)
  - DYSPEPSIA [None]
  - FEELING ABNORMAL [None]
  - NAUSEA [None]
